FAERS Safety Report 18321673 (Version 2)
Quarter: 2020Q4

REPORT INFORMATION
  Report Type: Spontaneous
  Country: US (occurrence: US)
  Receive Date: 20200929
  Receipt Date: 20201227
  Transmission Date: 20210113
  Serious: Yes (Other)
  Sender: FDA-Public Use
  Company Number: US-ROCHE-2685336

PATIENT
  Age: 68 Year
  Sex: Female
  Weight: 66.74 kg

DRUGS (8)
  1. AVASTIN [Suspect]
     Active Substance: BEVACIZUMAB
     Indication: SMALL INTESTINE CARCINOMA
     Dosage: FOLFIRI WITH AVASTIN
     Route: 065
     Dates: start: 201506, end: 201510
  2. AVASTIN [Suspect]
     Active Substance: BEVACIZUMAB
     Dosage: 5FU AND AVASTIN 5 MG/KG EVERY 2 WEEKS; ONGOING: NO
     Route: 042
     Dates: start: 20160202, end: 20160315
  3. AVASTIN [Suspect]
     Active Substance: BEVACIZUMAB
     Dosage: 5FU LEUCOVORIN WITH AVASTIN
     Route: 065
     Dates: start: 201510, end: 201603
  4. AVASTIN [Suspect]
     Active Substance: BEVACIZUMAB
     Dosage: 5FU AND AVASTIN 5 MG/KG EVERY 2 WEEKS; ONGOING: NO
     Route: 042
     Dates: start: 20151013, end: 20151222
  5. AVASTIN [Suspect]
     Active Substance: BEVACIZUMAB
     Dosage: FOLFIRI AND AVASTIN 5 MG/KG EVERY 2 WEEKS; ONGOING: NO
     Route: 042
     Dates: start: 20150617, end: 20150929
  6. FLUOROURACIL 5 FU [Concomitant]
     Active Substance: FLUOROURACIL
     Indication: SMALL INTESTINE CARCINOMA
     Dates: start: 201506, end: 201603
  7. LEUCOVORIN. [Concomitant]
     Active Substance: LEUCOVORIN
     Indication: SMALL INTESTINE CARCINOMA
     Dates: start: 201506, end: 201603
  8. IRINOTECAN [Concomitant]
     Active Substance: IRINOTECAN
     Indication: SMALL INTESTINE CARCINOMA
     Dates: start: 201506, end: 201610

REACTIONS (5)
  - Off label use [Unknown]
  - Chest pain [Not Recovered/Not Resolved]
  - Intentional product use issue [Unknown]
  - Neoplasm progression [Recovered/Resolved]
  - Thrombosis in device [Recovered/Resolved]

NARRATIVE: CASE EVENT DATE: 201601
